FAERS Safety Report 8516231-5 (Version None)
Quarter: 2012Q3

REPORT INFORMATION
  Report Type: 
  Country: None (occurrence: None)
  Receive Date: 20120717
  Receipt Date: 20120709
  Transmission Date: 20120928
  Serious: Yes (Hospitalization, Other)
  Sender: FDA-Public Use
  Company Number: US-ABBOTT-12P-163-0954478-00

PATIENT
  Sex: Female

DRUGS (21)
  1. HUMIRA [Suspect]
     Indication: TEMPORAL ARTERITIS
     Route: 058
     Dates: start: 20100725, end: 20120401
  2. NORVASC [Suspect]
     Indication: HYPERTENSION
     Dates: start: 20120501
  3. FOSAMAX [Concomitant]
     Indication: PRODUCT USED FOR UNKNOWN INDICATION
  4. VITAMIN B COMPLEX CAP [Concomitant]
     Indication: PRODUCT USED FOR UNKNOWN INDICATION
  5. VITAMIN D [Concomitant]
     Indication: PRODUCT USED FOR UNKNOWN INDICATION
  6. OMEPRAZOLE [Concomitant]
     Indication: PRODUCT USED FOR UNKNOWN INDICATION
  7. ASCORBIC ACID [Concomitant]
     Indication: PRODUCT USED FOR UNKNOWN INDICATION
  8. VITAMIN E [Concomitant]
     Indication: PRODUCT USED FOR UNKNOWN INDICATION
  9. PRADAXA [Suspect]
     Indication: PRODUCT USED FOR UNKNOWN INDICATION
     Dates: end: 20120101
  10. PREDNISONE [Concomitant]
     Indication: PRODUCT USED FOR UNKNOWN INDICATION
  11. CALCIUM [Concomitant]
     Indication: PRODUCT USED FOR UNKNOWN INDICATION
  12. FOLIC ACID [Concomitant]
     Indication: PRODUCT USED FOR UNKNOWN INDICATION
  13. LEVOTHYROXINE SODIUM [Concomitant]
     Indication: PRODUCT USED FOR UNKNOWN INDICATION
     Dates: end: 20120101
  14. HUMIRA [Suspect]
     Dates: start: 20120601
  15. VERAPAMIL [Concomitant]
     Indication: BLOOD PRESSURE
     Dates: end: 20120101
  16. DOXAZOSIN MESYLATE [Concomitant]
     Indication: HYPERTENSION
  17. VITAMIN B-12 [Concomitant]
     Indication: PRODUCT USED FOR UNKNOWN INDICATION
  18. ATORVASTATIN [Concomitant]
     Indication: BLOOD CHOLESTEROL INCREASED
  19. MULTI-VITAMIN [Concomitant]
     Indication: PRODUCT USED FOR UNKNOWN INDICATION
  20. LEVOTHYROXINE SODIUM [Concomitant]
     Dates: start: 20120101
  21. ASPIRIN [Concomitant]
     Indication: PRODUCT USED FOR UNKNOWN INDICATION
     Dates: start: 20120101

REACTIONS (11)
  - WALKING AID USER [None]
  - MUSCULAR WEAKNESS [None]
  - THYROID NEOPLASM [None]
  - INJECTION SITE PAIN [None]
  - HIP FRACTURE [None]
  - ATRIAL FIBRILLATION [None]
  - PAIN [None]
  - FALL [None]
  - MUSCLE FATIGUE [None]
  - BLOOD TEST ABNORMAL [None]
  - BLOOD PRESSURE SYSTOLIC INCREASED [None]
